FAERS Safety Report 25679590 (Version 1)
Quarter: 2025Q3

REPORT INFORMATION
  Report Type: Spontaneous
  Country: US (occurrence: US)
  Receive Date: 20250814
  Receipt Date: 20250814
  Transmission Date: 20251021
  Serious: Yes (Disabling, Other)
  Sender: SANDOZ
  Company Number: US-002147023-NVSC2023US209853

PATIENT
  Sex: Male

DRUGS (3)
  1. COSENTYX [Suspect]
     Active Substance: SECUKINUMAB
     Indication: Psoriatic arthropathy
     Dosage: 300 MG, QMO
     Route: 058
  2. METHOTREXATE [Suspect]
     Active Substance: METHOTREXATE
     Indication: Psoriatic arthropathy
     Route: 065
  3. SULFASALAZINE [Suspect]
     Active Substance: SULFASALAZINE
     Indication: Psoriatic arthropathy
     Route: 065

REACTIONS (7)
  - Pain [Unknown]
  - Renal impairment [Unknown]
  - Joint swelling [Unknown]
  - Muscle spasms [Unknown]
  - Spinal disorder [Unknown]
  - Product use in unapproved indication [Unknown]
  - Drug ineffective [Unknown]
